FAERS Safety Report 7363354-2 (Version None)
Quarter: 2011Q1

REPORT INFORMATION
  Report Type: 
  Country: None (occurrence: None)
  Receive Date: 20110321
  Receipt Date: 20110221
  Transmission Date: 20110831
  Serious: No
  Sender: FDA-Public Use
  Company Number: US-B.I. PHARMACEUTICALS,INC./RIDGEFIELD-2011-BP-06445BP

PATIENT
  Age: 70 Year
  Sex: Female

DRUGS (3)
  1. AMIODARONE HCL [Concomitant]
     Indication: ATRIAL FIBRILLATION
     Route: 048
  2. PRADAXA [Suspect]
     Indication: ATRIAL FIBRILLATION
     Dosage: 300 MG
     Route: 048
     Dates: start: 20110217
  3. SYNTHROID [Concomitant]
     Indication: HYPOTHYROIDISM
     Dosage: 1 MG
     Route: 048

REACTIONS (4)
  - ABDOMINAL PAIN [None]
  - HEADACHE [None]
  - HYPOAESTHESIA ORAL [None]
  - ABDOMINAL DISTENSION [None]
